FAERS Safety Report 7894723-X (Version None)
Quarter: 2011Q4

REPORT INFORMATION
  Report Type: 
  Country: None (occurrence: None)
  Receive Date: 20111106
  Receipt Date: 20110817
  Transmission Date: 20120403
  Serious: No
  Sender: FDA-Public Use
  Company Number: US-AMGEN-USASP2011042041

PATIENT
  Sex: Female

DRUGS (5)
  1. ENBREL [Suspect]
     Indication: PSORIATIC ARTHROPATHY
  2. ENBREL [Suspect]
     Indication: RHEUMATOID ARTHRITIS
     Dosage: 50 MG, QWK
     Dates: start: 20101101
  3. ENBREL [Suspect]
     Indication: GOUT
  4. TREXALL [Concomitant]
     Dosage: 1 MG, QWK
  5. ENBREL [Suspect]
     Indication: OSTEOARTHRITIS

REACTIONS (1)
  - INJECTION SITE PAIN [None]
